FAERS Safety Report 7116668-5 (Version None)
Quarter: 2010Q4

REPORT INFORMATION
  Report Type: 
  Country: None (occurrence: None)
  Receive Date: 20101122
  Receipt Date: 20101116
  Transmission Date: 20110411
  Serious: Yes (Life-Threatening)
  Sender: FDA-Public Use
  Company Number: B0665555A

PATIENT
  Sex: Male

DRUGS (10)
  1. CEFUROXIME [Suspect]
     Route: 042
     Dates: start: 20100608, end: 20100608
  2. VENTOLIN [Concomitant]
     Route: 055
  3. SERETIDE [Concomitant]
     Route: 055
  4. TRACRIUM [Concomitant]
     Route: 042
     Dates: start: 20100608, end: 20100608
  5. SPIRIVA [Concomitant]
     Route: 055
  6. PENTOTHAL [Concomitant]
     Route: 042
     Dates: start: 20100608, end: 20100608
  7. SUFENTA PRESERVATIVE FREE [Concomitant]
     Route: 042
     Dates: start: 20100608, end: 20100608
  8. KETALAR [Concomitant]
     Route: 042
     Dates: start: 20100608, end: 20100608
  9. ATARAX [Concomitant]
     Indication: PREMEDICATION
     Route: 065
     Dates: start: 20100607, end: 20100608
  10. METFORMIN HCL [Concomitant]
     Route: 065
     Dates: end: 20100601

REACTIONS (4)
  - ANAPHYLACTIC SHOCK [None]
  - GENERALISED ERYTHEMA [None]
  - HYPOTENSION [None]
  - TACHYCARDIA [None]
